FAERS Safety Report 7088073 (Version 2)
Quarter: 2013Q3

REPORT INFORMATION
  Report Type: Spontaneous
  Country: US (occurrence: US)
  Receive Date: 20090821
  Receipt Date: 20130719
  Transmission Date: 20140515
  Serious: Yes (Other)
  Sender: FDA-Public Use
  Company Number: US-ABBOTT-09P-163-0590814-00

PATIENT
  Sex: Male
  Weight: 63.56 kg

DRUGS (1)
  1. BIAXIN [Suspect]
     Indication: BRONCHITIS
     Dates: start: 1996, end: 1996

REACTIONS (7)
  - Hepatitis toxic [Recovered/Resolved]
  - Chronic lymphocytic leukaemia [Recovered/Resolved]
  - Jaundice [Not Recovered/Not Resolved]
  - Liver function test abnormal [Not Recovered/Not Resolved]
  - Splenomegaly [Unknown]
  - Diverticulitis [Unknown]
  - Biopsy liver abnormal [Not Recovered/Not Resolved]
